FAERS Safety Report 8371494-4 (Version None)
Quarter: 2012Q2

REPORT INFORMATION
  Report Type: 
  Country: None (occurrence: None)
  Receive Date: 20120518
  Receipt Date: 20120507
  Transmission Date: 20120825
  Serious: No
  Sender: FDA-Public Use
  Company Number: US-ASTRAZENECA-2012SE29557

PATIENT
  Age: 58 Year
  Sex: Female

DRUGS (2)
  1. SEROQUEL [Suspect]
     Route: 048
  2. NEXIUM [Suspect]
     Route: 048

REACTIONS (4)
  - SEASONAL ALLERGY [None]
  - MUSCULOSKELETAL DISCOMFORT [None]
  - UPPER-AIRWAY COUGH SYNDROME [None]
  - NECK PAIN [None]
